FAERS Safety Report 16898108 (Version 1)
Quarter: 2019Q4

REPORT INFORMATION
  Report Type: Spontaneous
  Country: GB (occurrence: GB)
  Receive Date: 20191009
  Receipt Date: 20191009
  Transmission Date: 20200122
  Serious: Yes (Other)
  Sender: FDA-Public Use
  Company Number: GB-AMGEN-GBRSP2019162660

PATIENT
  Age: 47 Year
  Sex: Female
  Weight: 74 kg

DRUGS (9)
  1. CODEINE [Concomitant]
     Active Substance: CODEINE
  2. LEVOTHYROXINE SODIUM. [Concomitant]
     Active Substance: LEVOTHYROXINE SODIUM
  3. FOLIC ACID. [Concomitant]
     Active Substance: FOLIC ACID
  4. PARACETAMOL [Concomitant]
     Active Substance: ACETAMINOPHEN
  5. MAXIDEX [Concomitant]
     Active Substance: DEXAMETHASONE
  6. HYLO TEAR [Concomitant]
  7. AMGEVITA [Suspect]
     Active Substance: ADALIMUMAB
     Indication: CROHN^S DISEASE
     Dosage: 40 MILLIGRAM, QWK
     Route: 058
     Dates: start: 20190809
  8. ACCRETE D3 [Concomitant]
     Active Substance: CALCIUM CARBONATE\CHOLECALCIFEROL
  9. TAPENTADOL HYDROCHLORIDE [Concomitant]
     Active Substance: TAPENTADOL HYDROCHLORIDE

REACTIONS (5)
  - Dizziness [Unknown]
  - Peripheral swelling [Unknown]
  - Contusion [Unknown]
  - Capillary fragility [Unknown]
  - Nausea [Unknown]

NARRATIVE: CASE EVENT DATE: 20190809
